FAERS Safety Report 8114914-2 (Version None)
Quarter: 2012Q1

REPORT INFORMATION
  Report Type: 
  Country: None (occurrence: None)
  Receive Date: 20120206
  Receipt Date: 20120130
  Transmission Date: 20120608
  Serious: No
  Sender: FDA-Public Use
  Company Number: GB-JNJFOC-20120200193

PATIENT
  Sex: Female

DRUGS (1)
  1. REMICADE [Suspect]
     Indication: PSORIASIS
     Dosage: 7 INFUSIONS
     Route: 042

REACTIONS (3)
  - ANTINUCLEAR ANTIBODY POSITIVE [None]
  - FATIGUE [None]
  - ARTHRALGIA [None]
